FAERS Safety Report 8876849 (Version 4)
Quarter: 2014Q1

REPORT INFORMATION
  Report Type: Spontaneous
  Country: US (occurrence: None)
  Receive Date: 20120426
  Receipt Date: 20130107
  Transmission Date: 20141002
  Serious: No
  Sender: FDA-Public Use
  Company Number: PHEH2012US003712

PATIENT
  Age: 42 Year
  Sex: Male
  Weight: 112.2 kg

DRUGS (3)
  1. GILENYA [Suspect]
     Indication: MULTIPLE SCLEROSIS
     Route: 048
     Dates: start: 20120124, end: 20120515
  2. DEPAKOTE (VALPROATE SEMISODIUM) [Concomitant]
  3. CAPTOPRIL (CAPTOPRIL) (CAPTOPRIL) [Concomitant]

REACTIONS (4)
  - Abdominal pain upper [None]
  - Flatulence [None]
  - Diarrhoea [None]
  - White blood cell count decreased [None]
